FAERS Safety Report 17490239 (Version 1)
Quarter: 2020Q1

REPORT INFORMATION
  Report Type: Spontaneous
  Country: US (occurrence: US)
  Receive Date: 20200303
  Receipt Date: 20200303
  Transmission Date: 20200409
  Serious: No
  Sender: FDA-Public Use
  Company Number: US-AKORN PHARMACEUTICALS-2019AKN02537

PATIENT
  Age: 16 Year
  Sex: Male
  Weight: 66.67 kg

DRUGS (4)
  1. OTC ALLERGY MEDICATION (OVER THE COUNTER; UNSPECIFIED) [Concomitant]
  2. FISH OIL [Concomitant]
     Active Substance: FISH OIL
  3. ST JOHN^S WORT [Concomitant]
     Active Substance: ST. JOHN^S WORT
  4. MYORISAN [Suspect]
     Active Substance: ISOTRETINOIN
     Indication: ACNE
     Dosage: 40 MG, 1X/DAY
     Route: 048
     Dates: start: 20190910, end: 20191122

REACTIONS (2)
  - Off label use [Recovered/Resolved]
  - White blood cell count decreased [Unknown]

NARRATIVE: CASE EVENT DATE: 2019
